FAERS Safety Report 7858105-9 (Version None)
Quarter: 2011Q4

REPORT INFORMATION
  Report Type: 
  Country: None (occurrence: None)
  Receive Date: 20111027
  Receipt Date: 20111012
  Transmission Date: 20120403
  Serious: Yes (Hospitalization)
  Sender: FDA-Public Use
  Company Number: US-BAYER-2011-013144

PATIENT
  Age: 19 Year
  Sex: Female
  Weight: 58.957 kg

DRUGS (4)
  1. YASMIN [Suspect]
     Dosage: UNK
     Dates: start: 20060101
  2. YAZ [Suspect]
     Dosage: UNK
     Dates: start: 20060101
  3. IBUPROFEN (ADVIL) [Concomitant]
     Dosage: UNK
     Dates: end: 20090401
  4. ASPIRIN [Concomitant]

REACTIONS (4)
  - CEREBRAL VENOUS THROMBOSIS [None]
  - PHOTOPHOBIA [None]
  - JUGULAR VEIN THROMBOSIS [None]
  - HEADACHE [None]
